FAERS Safety Report 16683377 (Version 3)
Quarter: 2025Q4

REPORT INFORMATION
  Report Type: Spontaneous
  Country: US (occurrence: US)
  Receive Date: 20190808
  Receipt Date: 20251202
  Transmission Date: 20260117
  Serious: Yes (Life-Threatening, Other)
  Sender: GALDERMA
  Company Number: None

PATIENT

DRUGS (2)
  1. DOXYCYCLINE [Suspect]
     Active Substance: DOXYCYCLINE
     Indication: Postoperative wound infection
     Dosage: UNK
     Route: 065
  2. HYDROXYCHLOROQUINE [Concomitant]
     Active Substance: HYDROXYCHLOROQUINE
     Indication: Systemic lupus erythematosus
     Dosage: UNK DOSAGE FORM
     Route: 065

REACTIONS (7)
  - Toxic epidermal necrolysis [Unknown]
  - Ulcerative keratitis [Recovering/Resolving]
  - Neuropathy peripheral [Recovered/Resolved]
  - Onychomadesis [Unknown]
  - Keratitis [Recovering/Resolving]
  - Conjunctivitis [Recovering/Resolving]
  - Intentional product use issue [Recovered/Resolved]
